FAERS Safety Report 10186010 (Version 1)
Quarter: 2014Q2

REPORT INFORMATION
  Report Type: Spontaneous
  Country: US (occurrence: US)
  Receive Date: 20140521
  Receipt Date: 20140521
  Transmission Date: 20141212
  Serious: Yes (Other)
  Sender: FDA-Public Use
  Company Number: US-BRISTOL-MYERS SQUIBB COMPANY-20730636

PATIENT
  Age: 50 Year
  Sex: Female
  Weight: 58.96 kg

DRUGS (2)
  1. ABATACEPT SUBQ INJECTION 125MG/ML [Suspect]
     Indication: RHEUMATOID ARTHRITIS
     Route: 058
  2. METHOTREXATE [Concomitant]

REACTIONS (3)
  - Basal cell carcinoma [Unknown]
  - Injection site discharge [Unknown]
  - Injection site haemorrhage [Unknown]
